FAERS Safety Report 25591985 (Version 2)
Quarter: 2025Q3

REPORT INFORMATION
  Report Type: Spontaneous
  Country: EU (occurrence: EU)
  Receive Date: 20250722
  Receipt Date: 20250804
  Transmission Date: 20251020
  Serious: Yes (Other)
  Sender: NOVARTIS
  Company Number: EU-002147023-NVSC2025FI114684

PATIENT
  Age: 38 Year
  Sex: Male

DRUGS (1)
  1. COSENTYX [Suspect]
     Active Substance: SECUKINUMAB
     Indication: Spondylitis
     Dosage: 150 MG, QW (LOADING DOSE)
     Route: 058
     Dates: start: 202505, end: 20250522

REACTIONS (13)
  - Oropharyngeal discomfort [Not Recovered/Not Resolved]
  - Throat tightness [Recovering/Resolving]
  - Pharyngeal swelling [Recovering/Resolving]
  - Oropharyngeal pain [Not Recovered/Not Resolved]
  - Wound [Unknown]
  - Dizziness [Recovering/Resolving]
  - Ocular hyperaemia [Recovering/Resolving]
  - Sensation of foreign body [Not Recovered/Not Resolved]
  - Dry throat [Not Recovered/Not Resolved]
  - Anger [Not Recovered/Not Resolved]
  - Hypersensitivity [Unknown]
  - Musculoskeletal discomfort [Unknown]
  - Haemorrhage [Unknown]

NARRATIVE: CASE EVENT DATE: 20250101
